FAERS Safety Report 10178513 (Version 2)
Quarter: 2014Q2

REPORT INFORMATION
  Report Type: Report from Study
  Country: CH (occurrence: CH)
  Receive Date: 20140519
  Receipt Date: 20140520
  Transmission Date: 20141212
  Serious: Yes (Death)
  Sender: FDA-Public Use
  Company Number: CH-ROCHE-1401410

PATIENT
  Age: 80 Year
  Sex: Female

DRUGS (7)
  1. RITUXIMAB [Suspect]
     Indication: B-CELL LYMPHOMA
     Dosage: LAST DOSE PRIOR TO EVENT ON 24/MAR/2014
     Route: 042
     Dates: start: 20131230
  2. LENALIDOMIDE [Suspect]
     Indication: B-CELL LYMPHOMA
     Dosage: LAST DOSE (10 MG) PRIOR TO EVENT ON 13/FEB/2014
     Route: 048
     Dates: start: 20131230, end: 20140213
  3. LENALIDOMIDE [Suspect]
     Dosage: LAST DOSE (5 MG) PRIOR TO EVENT ON 02/MAR/2014
     Route: 048
     Dates: start: 20140218
  4. BENDAMUSTINE [Suspect]
     Indication: B-CELL LYMPHOMA
     Dosage: LAST DOSE PRIOR TO EVENT ON 25/MAR/2014
     Route: 042
     Dates: start: 20131230
  5. AMIODARONE [Concomitant]
     Route: 048
  6. ATORVASTATIN [Concomitant]
     Route: 048
  7. PREGABALIN [Concomitant]
     Route: 048

REACTIONS (1)
  - Haemorrhage intracranial [Fatal]
